FAERS Safety Report 11759172 (Version 1)
Quarter: 2015Q4

REPORT INFORMATION
  Report Type: Spontaneous
  Country: US (occurrence: US)
  Receive Date: 20151120
  Receipt Date: 20151120
  Transmission Date: 20160304
  Serious: No
  Sender: FDA-Public Use
  Company Number: US-ELI_LILLY_AND_COMPANY-US201210000505

PATIENT
  Age: 71 Year
  Sex: Female

DRUGS (2)
  1. FORTEO [Suspect]
     Active Substance: TERIPARATIDE
     Indication: OSTEOPOROSIS
     Dosage: 20 UG, QD
  2. FORTEO [Suspect]
     Active Substance: TERIPARATIDE
     Dosage: 20 UG, QD

REACTIONS (8)
  - Hearing impaired [Unknown]
  - Joint injury [Unknown]
  - Gait disturbance [Unknown]
  - Feeling abnormal [Unknown]
  - Mobility decreased [Unknown]
  - Joint swelling [Unknown]
  - Meniscus injury [Unknown]
  - Arthralgia [Unknown]

NARRATIVE: CASE EVENT DATE: 201209
